FAERS Safety Report 7031748-0 (Version None)
Quarter: 2010Q4

REPORT INFORMATION
  Report Type: 
  Country: None (occurrence: None)
  Receive Date: 20101007
  Receipt Date: 20100928
  Transmission Date: 20110411
  Serious: No
  Sender: FDA-Public Use
  Company Number: US-BIOGENIDEC-2010BI018742

PATIENT
  Age: 42 Year
  Sex: Female

DRUGS (3)
  1. TYSABRI [Suspect]
     Indication: MULTIPLE SCLEROSIS
     Route: 042
     Dates: start: 20100224, end: 20100809
  2. BENADRYL [Concomitant]
     Indication: PREMEDICATION
     Dates: start: 20100301
  3. BENADRYL [Concomitant]
     Indication: INFUSION RELATED REACTION
     Dates: start: 20100301

REACTIONS (12)
  - BLOOD PRESSURE INCREASED [None]
  - COUGH [None]
  - DYSPNOEA [None]
  - FATIGUE [None]
  - FEELING HOT [None]
  - HYPERHIDROSIS [None]
  - INFUSION RELATED REACTION [None]
  - MALAISE [None]
  - MYCOTIC ALLERGY [None]
  - NAUSEA [None]
  - NEUTRALISING ANTIBODIES POSITIVE [None]
  - VOMITING [None]
